FAERS Safety Report 6626989-8 (Version None)
Quarter: 2010Q1

REPORT INFORMATION
  Report Type: 
  Country: None (occurrence: None)
  Receive Date: 20100311
  Receipt Date: 20100301
  Transmission Date: 20100710
  Serious: Yes (Death, Hospitalization)
  Sender: FDA-Public Use
  Company Number: US-JNJFOC-20100204361

PATIENT
  Sex: Female
  Weight: 103.87 kg

DRUGS (7)
  1. REMICADE [Suspect]
     Indication: CROHN'S DISEASE
     Route: 042
  2. BENTYL [Concomitant]
  3. CLONAZEPAM [Concomitant]
  4. LOMOTIL [Concomitant]
  5. PROMETHAZINE [Concomitant]
  6. SEROQUEL [Concomitant]
  7. ULTRAM [Concomitant]

REACTIONS (1)
  - PULMONARY EMBOLISM [None]
